FAERS Safety Report 5880116-3 (Version None)
Quarter: 2008Q3

REPORT INFORMATION
  Report Type: 
  Country: None (occurrence: None)
  Receive Date: 20080911
  Receipt Date: 20080911
  Transmission Date: 20090109
  Serious: Yes (Other)
  Sender: FDA-Public Use
  Company Number: None

PATIENT
  Sex: Female
  Weight: 104.3273 kg

DRUGS (2)
  1. LAMOTRIGINE [Suspect]
     Indication: BIPOLAR II DISORDER
     Dosage: 100 MG QD PO
     Route: 048
     Dates: start: 20080824, end: 20080908
  2. BUPROPION HCL [Concomitant]

REACTIONS (3)
  - DEPRESSED MOOD [None]
  - PANIC REACTION [None]
  - THERAPEUTIC RESPONSE UNEXPECTED WITH DRUG SUBSTITUTION [None]
